FAERS Safety Report 7235886-9 (Version None)
Quarter: 2011Q1

REPORT INFORMATION
  Report Type: 
  Country: None (occurrence: None)
  Receive Date: 20110120
  Receipt Date: 20110117
  Transmission Date: 20110831
  Serious: Yes (Other)
  Sender: FDA-Public Use
  Company Number: AU-ROCHE-753918

PATIENT
  Sex: Male

DRUGS (4)
  1. AVASTIN [Suspect]
     Route: 065
  2. IRINOTECAN HYDROCHLORIDE [Concomitant]
  3. FLUOROURACIL [Concomitant]
  4. FOLINIC ACID [Concomitant]

REACTIONS (1)
  - COLORECTAL CANCER METASTATIC [None]
